FAERS Safety Report 6641039-5 (Version None)
Quarter: 2010Q1

REPORT INFORMATION
  Report Type: 
  Country: None (occurrence: None)
  Receive Date: 20100318
  Receipt Date: 20091214
  Transmission Date: 20100710
  Serious: No
  Sender: FDA-Public Use
  Company Number: US-ASTRAZENECA-2009SE31823

PATIENT
  Age: 63 Year
  Sex: Female
  Weight: 79.4 kg

DRUGS (2)
  1. ZESTRIL [Suspect]
     Indication: BLOOD PRESSURE
     Route: 048
  2. ZESTRIL [Suspect]
     Route: 048
     Dates: start: 20091210

REACTIONS (2)
  - FATIGUE [None]
  - MALAISE [None]
